FAERS Safety Report 9408468 (Version 2)
Quarter: 2013Q4

REPORT INFORMATION
  Report Type: Spontaneous
  Country: US (occurrence: None)
  Receive Date: 20130716
  Receipt Date: 20131113
  Transmission Date: 20140711
  Serious: Yes (Hospitalization, Other)
  Sender: FDA-Public Use
  Company Number: 2013US001911

PATIENT
  Age: 52 Year
  Sex: Female

DRUGS (1)
  1. ICLUSIG (PONATINIB) TABLET, 45 MG [Suspect]
     Indication: CHRONIC MYELOID LEUKAEMIA
     Dosage: 4 WEEKS PRIOR
     Route: 048

REACTIONS (4)
  - Cerebral vasoconstriction [None]
  - Cerebrovascular accident [None]
  - Cerebral infarction [None]
  - Hypertensive emergency [None]
